FAERS Safety Report 13571041 (Version 1)
Quarter: 2017Q2

REPORT INFORMATION
  Report Type: Spontaneous
  Country: US (occurrence: US)
  Receive Date: 20170523
  Receipt Date: 20170523
  Transmission Date: 20170830
  Serious: No
  Sender: FDA-Public Use
  Company Number: US-ZYDUS-010940

PATIENT
  Age: 51 Year
  Sex: Female

DRUGS (5)
  1. DULOXETINE/DULOXETINE HYDROCHLORIDE [Concomitant]
     Indication: FIBROMYALGIA
  2. CLONAZEPAM. [Concomitant]
     Active Substance: CLONAZEPAM
     Indication: ANXIETY
  3. TRAZODONE/TRAZODONE HYDROCHLORIDE [Concomitant]
     Indication: SLEEP DISORDER
  4. HYDROXYZINE [Concomitant]
     Active Substance: HYDROXYZINE HYDROCHLORIDE
     Indication: HYPERSENSITIVITY
  5. TOPIRAMATE. [Suspect]
     Active Substance: TOPIRAMATE
     Indication: NERVOUS SYSTEM DISORDER
     Route: 048
     Dates: start: 20151231

REACTIONS (2)
  - Drug ineffective for unapproved indication [Not Recovered/Not Resolved]
  - Anxiety [Not Recovered/Not Resolved]
